FAERS Safety Report 24449303 (Version 2)
Quarter: 2024Q4

REPORT INFORMATION
  Report Type: Spontaneous
  Country: CH (occurrence: CH)
  Receive Date: 20241017
  Receipt Date: 20241029
  Transmission Date: 20250115
  Serious: Yes (Other)
  Sender: JOHNSON AND JOHNSON
  Company Number: CH-BAYER-2024A143008

PATIENT
  Sex: Female

DRUGS (3)
  1. XARELTO [Suspect]
     Active Substance: RIVAROXABAN
     Indication: Atrial fibrillation
     Dosage: 20 MG
     Route: 048
     Dates: start: 2018
  2. PITAVASTATIN CALCIUM [Concomitant]
     Active Substance: PITAVASTATIN CALCIUM
  3. BEMPEDOIC ACID\EZETIMIBE [Concomitant]
     Active Substance: BEMPEDOIC ACID\EZETIMIBE

REACTIONS (4)
  - Lactose intolerance [Unknown]
  - Flatulence [Not Recovered/Not Resolved]
  - Intestinal barrier dysfunction [Unknown]
  - Abdominal distension [Unknown]

NARRATIVE: CASE EVENT DATE: 20220101
